FAERS Safety Report 8822977 (Version 2)
Quarter: 2015Q3

REPORT INFORMATION
  Report Type: Report from Study
  Country: US (occurrence: US)
  Receive Date: 20121003
  Receipt Date: 20150804
  Transmission Date: 20151125
  Serious: Yes (Death)
  Sender: FDA-Public Use
  Company Number: US-ROCHE-1131404

PATIENT
  Age: 63 Year
  Sex: Male

DRUGS (25)
  1. MYLANTA (ALUMINUM HYDROXIDE/MAGNESIUM HYDROXIDE) [Concomitant]
  2. CELEXA (UNITED STATES) [Concomitant]
     Route: 048
  3. LEXAPRO [Concomitant]
     Active Substance: ESCITALOPRAM OXALATE
     Dosage: ONCE DAILY AT BEDTIME
     Route: 065
  4. LEXAPRO [Concomitant]
     Active Substance: ESCITALOPRAM OXALATE
     Route: 065
  5. FILGRASTIM [Suspect]
     Active Substance: FILGRASTIM
     Indication: PRODUCT USED FOR UNKNOWN INDICATION
     Route: 065
  6. PHENERGAN [Concomitant]
     Active Substance: PROMETHAZINE HYDROCHLORIDE
     Indication: NAUSEA
     Route: 048
  7. KYTRIL [Concomitant]
     Active Substance: GRANISETRON HYDROCHLORIDE
     Indication: NAUSEA
     Route: 048
  8. IFOSFAMIDE. [Concomitant]
     Active Substance: IFOSFAMIDE
  9. PENTAMIDINE [Concomitant]
     Active Substance: PENTAMIDINE
     Dosage: MONTHLY
     Route: 065
  10. CELEXA (UNITED STATES) [Concomitant]
     Route: 048
  11. FLAGYL [Concomitant]
     Active Substance: METRONIDAZOLE\METRONIDAZOLE HYDROCHLORIDE
     Route: 048
  12. METHYL PREDNISOLONE SODIUM SUCCINATE [Concomitant]
     Active Substance: METHYLPREDNISOLONE SODIUM SUCCINATE
  13. ETOPOSIDE. [Concomitant]
     Active Substance: ETOPOSIDE
  14. PLATINOL [Concomitant]
     Active Substance: CISPLATIN
  15. LIPITOR [Concomitant]
     Active Substance: ATORVASTATIN CALCIUM
     Route: 065
  16. PHENERGAN [Concomitant]
     Active Substance: PROMETHAZINE HYDROCHLORIDE
     Indication: NAUSEA
     Route: 048
  17. PREDNISONE. [Concomitant]
     Active Substance: PREDNISONE
     Route: 065
     Dates: start: 200702
  18. NEXIUM [Concomitant]
     Active Substance: ESOMEPRAZOLE MAGNESIUM
     Route: 048
  19. DIFLUCAN [Concomitant]
     Active Substance: FLUCONAZOLE
  20. ONCOVIN [Concomitant]
     Active Substance: VINCRISTINE SULFATE
     Route: 065
     Dates: start: 200702
  21. K-DUR [Concomitant]
     Active Substance: POTASSIUM CHLORIDE
     Route: 048
  22. VALTREX [Concomitant]
     Active Substance: VALACYCLOVIR HYDROCHLORIDE
     Route: 048
  23. CYTARABINE. [Concomitant]
     Active Substance: CYTARABINE
     Route: 065
  24. CYCLOPHOSPHAMIDE. [Concomitant]
     Active Substance: CYCLOPHOSPHAMIDE
  25. RITUXAN [Suspect]
     Active Substance: RITUXIMAB
     Indication: B-CELL LYMPHOMA
     Route: 065
     Dates: start: 200702

REACTIONS (25)
  - Febrile neutropenia [Unknown]
  - Dysgeusia [Unknown]
  - Cough [Unknown]
  - Fatigue [Unknown]
  - Pain in extremity [Unknown]
  - Constipation [Unknown]
  - Mucosal inflammation [Unknown]
  - Dizziness [Unknown]
  - Back pain [Unknown]
  - Suprapubic pain [Unknown]
  - Retroperitoneal lymphadenopathy [Unknown]
  - Flank pain [Unknown]
  - Cytopenia [Unknown]
  - Anxiety [Unknown]
  - Disease progression [Unknown]
  - Upper-airway cough syndrome [Unknown]
  - Obstructive uropathy [Unknown]
  - Nausea [Unknown]
  - Disease recurrence [Unknown]
  - Death [Fatal]
  - Clostridium difficile colitis [Unknown]
  - Headache [Recovered/Resolved with Sequelae]
  - Ill-defined disorder [Unknown]
  - Alopecia [Unknown]
  - Oedema peripheral [Unknown]

NARRATIVE: CASE EVENT DATE: 200710
